FAERS Safety Report 25342458 (Version 1)
Quarter: 2025Q2

REPORT INFORMATION
  Report Type: Spontaneous
  Country: US (occurrence: US)
  Receive Date: 20250521
  Receipt Date: 20250521
  Transmission Date: 20250717
  Serious: Yes (Life-Threatening, Other)
  Sender: NOVARTIS
  Company Number: US-002147023-NVSC2025US081336

PATIENT
  Age: 13 Year
  Sex: Female
  Weight: 43 kg

DRUGS (1)
  1. NEORAL [Suspect]
     Active Substance: CYCLOSPORINE
     Indication: Dermatomyositis
     Dosage: 500 MG, QD (EVERY EVENING)
     Route: 048
     Dates: start: 20031001, end: 20031018

REACTIONS (3)
  - Coma [Unknown]
  - Autoimmune disorder [Unknown]
  - Hallucination [Unknown]

NARRATIVE: CASE EVENT DATE: 20031001
